FAERS Safety Report 19657488 (Version 4)
Quarter: 2022Q1

REPORT INFORMATION
  Report Type: Spontaneous
  Country: JP (occurrence: JP)
  Receive Date: 20210804
  Receipt Date: 20220315
  Transmission Date: 20220423
  Serious: Yes (Other)
  Sender: FDA-Public Use
  Company Number: JP-AMGEN-JPNSP2020205924

PATIENT
  Age: 78 Year
  Sex: Female

DRUGS (6)
  1. EVENITY [Suspect]
     Active Substance: ROMOSOZUMAB-AQQG
     Indication: Product used for unknown indication
     Dosage: 210 MILLIGRAM, QMO
     Route: 058
     Dates: start: 20201022, end: 20201126
  2. BETAMETHASONE SODIUM PHOSPHATE [Suspect]
     Active Substance: BETAMETHASONE SODIUM PHOSPHATE
     Indication: Alopecia
     Dosage: UNK
     Route: 065
     Dates: end: 202107
  3. CARPRONIUM CHLORIDE [Suspect]
     Active Substance: CARPRONIUM CHLORIDE
     Indication: Alopecia
     Dosage: UNK
     Route: 065
     Dates: end: 202107
  4. EVISTA [Concomitant]
     Active Substance: RALOXIFENE HYDROCHLORIDE
     Dosage: UNK UNK, QD (TAKING IT EVERY MORNING)
  5. CALONAL [Concomitant]
     Active Substance: ACETAMINOPHEN
     Indication: Muscle strain
     Dosage: UNK
     Dates: start: 2020
  6. LOXOPROFEN SODIUM [Concomitant]
     Active Substance: LOXOPROFEN SODIUM
     Indication: Muscle strain
     Dosage: 60 MILLIGRAM, TID
     Dates: start: 2020

REACTIONS (27)
  - Vitreous haemorrhage [Unknown]
  - Nasopharyngitis [Unknown]
  - Malaise [Unknown]
  - Pain in extremity [Unknown]
  - Decreased appetite [Unknown]
  - Alopecia [Not Recovered/Not Resolved]
  - Dental discomfort [Unknown]
  - Fall [Unknown]
  - Muscle atrophy [Unknown]
  - Eye pain [Not Recovered/Not Resolved]
  - Visual impairment [Not Recovered/Not Resolved]
  - Myalgia [Unknown]
  - Skin wrinkling [Unknown]
  - Mouth haemorrhage [Unknown]
  - Depression [Unknown]
  - Weight decreased [Unknown]
  - Asthenia [Not Recovered/Not Resolved]
  - Mouth swelling [Unknown]
  - Arthralgia [Unknown]
  - Injection site pain [Unknown]
  - Injection site erythema [Unknown]
  - Muscle strain [Unknown]
  - Rhinalgia [Unknown]
  - Oropharyngeal pain [Unknown]
  - Loose tooth [Unknown]
  - Pain of skin [Unknown]
  - Skin swelling [Unknown]

NARRATIVE: CASE EVENT DATE: 20200101
